FAERS Safety Report 12624443 (Version 1)
Quarter: 2016Q3

REPORT INFORMATION
  Report Type: Other
  Country: IT (occurrence: IT)
  Receive Date: 20160805
  Receipt Date: 20160805
  Transmission Date: 20161109
  Serious: Yes (Other)
  Sender: FDA-Public Use
  Company Number: IT-HETERO LABS LTD-1055899

PATIENT

DRUGS (1)
  1. LEVETIRACETAM. [Suspect]
     Active Substance: LEVETIRACETAM
     Indication: ATYPICAL BENIGN PARTIAL EPILEPSY
     Route: 065

REACTIONS (1)
  - Seizure [Unknown]
